FAERS Safety Report 9893048 (Version 1)
Quarter: 2014Q1

REPORT INFORMATION
  Report Type: Report from Study
  Country: US (occurrence: US)
  Receive Date: 20140213
  Receipt Date: 20140213
  Transmission Date: 20141002
  Serious: Yes (Hospitalization)
  Sender: FDA-Public Use
  Company Number: US-ROCHE-1324769

PATIENT
  Sex: 0

DRUGS (5)
  1. AVASTIN [Suspect]
     Indication: COLON CANCER
     Route: 065
  2. XELODA [Suspect]
     Indication: COLON CANCER
     Route: 065
  3. OXALIPLATIN [Concomitant]
     Route: 065
  4. DECADRON [Concomitant]
     Route: 065
  5. ALOXI [Concomitant]
     Route: 040

REACTIONS (3)
  - Pancreatitis [Unknown]
  - Nausea [Unknown]
  - Abdominal pain [Unknown]
